FAERS Safety Report 4471437-X (Version None)
Quarter: 2004Q4

REPORT INFORMATION
  Report Type: 
  Country: None (occurrence: None)
  Receive Date: 20041012
  Receipt Date: 20041007
  Transmission Date: 20050328
  Serious: Yes (Death, Other)
  Sender: FDA-Public Use
  Company Number: PHNU2004DE03462

PATIENT
  Age: 65 Year
  Sex: Female
  Weight: 47 kg

DRUGS (2)
  1. ZOMETA [Suspect]
     Indication: NON-HODGKIN'S LYMPHOMA
     Dosage: 4 MG EVERY 4 WEEKS
     Route: 042
     Dates: start: 20021001
  2. CHEMOTHERAPEUTICS,OTHER [Concomitant]
     Indication: NON-HODGKIN'S LYMPHOMA

REACTIONS (4)
  - DENTAL OPERATION [None]
  - GINGIVAL ULCERATION [None]
  - LEFT VENTRICULAR FAILURE [None]
  - OSTEONECROSIS [None]
